FAERS Safety Report 15333929 (Version 1)
Quarter: 2018Q3

REPORT INFORMATION
  Report Type: Spontaneous
  Country: US (occurrence: US)
  Receive Date: 20180825
  Receipt Date: 20180825
  Transmission Date: 20181010
  Serious: Yes (Other)
  Sender: FDA-Public Use
  Company Number: None

PATIENT
  Age: 44 Year
  Sex: Female
  Weight: 53.55 kg

DRUGS (6)
  1. VITAMIN B COMPLEX [Concomitant]
     Active Substance: CYANOCOBALAMIN\DEXPANTHENOL\NIACINAMIDE\PYRIDOXINE HYDROCHLORIDE\RIBOFLAVIN 5^-PHOSPHATE SODIUM\THIAMINE HYDROCHLORIDE\VITAMIN B COMPLEX
  2. COQ10 [Concomitant]
     Active Substance: UBIDECARENONE
  3. L?CARTINE [Concomitant]
  4. METHIMAZOLE. [Suspect]
     Active Substance: METHIMAZOLE
     Indication: BASEDOW^S DISEASE
     Dosage: ?          QUANTITY:4 TABLET(S);?
     Route: 048
     Dates: start: 20180727, end: 20180810
  5. VITAMIN D [Concomitant]
     Active Substance: CHOLECALCIFEROL
  6. METAPROLOL [Concomitant]
     Active Substance: METOPROLOL

REACTIONS (1)
  - Hepatic enzyme increased [None]

NARRATIVE: CASE EVENT DATE: 20180810
